FAERS Safety Report 4844736-7 (Version None)
Quarter: 2005Q4

REPORT INFORMATION
  Report Type: 
  Country: None (occurrence: None)
  Receive Date: 20051129
  Receipt Date: 20051128
  Transmission Date: 20060501
  Serious: Yes (Hospitalization)
  Sender: FDA-Public Use
  Company Number: HQWYE597217NOV05

PATIENT
  Age: 54 Year
  Sex: Male

DRUGS (4)
  1. ARTANE [Suspect]
     Indication: PARKINSON'S DISEASE
  2. AMANTADINE HCL [Suspect]
     Indication: PARKINSON'S DISEASE
  3. DROXIDOPA (DROXIDOPA) [Suspect]
     Indication: PARKINSON'S DISEASE
  4. LEVODOPA BENSERAZIDE HYDROCHLO (BENSERAZIDE HYDROCHLORIDE/LEVODOPA) [Suspect]
     Indication: PARKINSON'S DISEASE

REACTIONS (5)
  - CARDIOMYOPATHY [None]
  - HAEMODIALYSIS [None]
  - HEART RATE INCREASED [None]
  - NEUROLEPTIC MALIGNANT SYNDROME [None]
  - RENAL DISORDER [None]
